FAERS Safety Report 5361080-2 (Version None)
Quarter: 2007Q2

REPORT INFORMATION
  Report Type: 
  Country: None (occurrence: None)
  Receive Date: 20070612
  Receipt Date: 20070601
  Transmission Date: 20071010
  Serious: Yes (Other)
  Sender: FDA-Public Use
  Company Number: 153114USA

PATIENT
  Age: 30 Year
  Sex: Female
  Weight: 105.6881 kg

DRUGS (7)
  1. COPAXONE [Suspect]
     Indication: MULTIPLE SCLEROSIS
     Dosage: 20 MG, SUBCUTANEOUS
     Route: 058
     Dates: start: 20070101, end: 20070219
  2. NIFEDIPINE [Concomitant]
  3. DYAZIDE [Concomitant]
  4. LISINOPRIL [Concomitant]
  5. LABETALOL HCL [Concomitant]
  6. NAPROXEN [Concomitant]
  7. VICODIN [Concomitant]

REACTIONS (6)
  - HAEMATOCRIT DECREASED [None]
  - HAEMOGLOBIN DECREASED [None]
  - PERIPHERAL EMBOLISM [None]
  - PERIPHERAL ISCHAEMIA [None]
  - PERIPHERAL VASCULAR DISORDER [None]
  - WHITE BLOOD CELL COUNT INCREASED [None]
